FAERS Safety Report 4425900-8 (Version None)
Quarter: 2004Q3

REPORT INFORMATION
  Report Type: 
  Country: None (occurrence: None)
  Receive Date: 20040810
  Receipt Date: 20040723
  Transmission Date: 20050211
  Serious: Yes (Other)
  Sender: FDA-Public Use
  Company Number: PHBS2004ES09753

PATIENT
  Age: 80 Year
  Sex: Female

DRUGS (2)
  1. VISUDYNE [Suspect]
     Indication: MACULAR DEGENERATION
  2. PANTOK [Suspect]
     Indication: HYPERCHOLESTEROLAEMIA

REACTIONS (2)
  - PHOTOSENSITIVITY REACTION [None]
  - TOXIC SKIN ERUPTION [None]
